FAERS Safety Report 16343286 (Version 1)
Quarter: 2019Q2

REPORT INFORMATION
  Report Type: Spontaneous
  Country: US (occurrence: US)
  Receive Date: 20190522
  Receipt Date: 20190522
  Transmission Date: 20190711
  Serious: Yes (Hospitalization)
  Sender: FDA-Public Use
  Company Number: US-BAYER-2019-097693

PATIENT
  Age: 80 Year
  Sex: Male
  Weight: 95 kg

DRUGS (4)
  1. AMLODIPINE [Concomitant]
     Active Substance: AMLODIPINE BESYLATE
     Dosage: 1 DF, QD
  2. BAYER LOW DOSE [Suspect]
     Active Substance: ASPIRIN
     Indication: PAIN
     Dosage: 4 DF, Q4HR
     Route: 048
  3. BAYER LOW DOSE [Suspect]
     Active Substance: ASPIRIN
     Indication: PAIN
     Route: 048
  4. RAMIPRIL. [Concomitant]
     Active Substance: RAMIPRIL
     Dosage: 1 DF, BID

REACTIONS (3)
  - Faeces discoloured [Unknown]
  - Abnormal faeces [Unknown]
  - Dizziness [Unknown]

NARRATIVE: CASE EVENT DATE: 20190502
